FAERS Safety Report 6895721-5 (Version None)
Quarter: 2010Q3

REPORT INFORMATION
  Report Type: 
  Country: None (occurrence: None)
  Receive Date: 20100802
  Receipt Date: 20100722
  Transmission Date: 20110219
  Serious: Yes (Hospitalization, Other)
  Sender: FDA-Public Use
  Company Number: NL-AMGEN-QUU425811

PATIENT
  Age: 58 Year
  Sex: Male

DRUGS (2)
  1. ENBREL [Suspect]
     Indication: PRODUCT USED FOR UNKNOWN INDICATION
     Route: 058
     Dates: start: 20080303, end: 20100601
  2. ENBREL [Suspect]
     Route: 058
     Dates: start: 20100716

REACTIONS (7)
  - CARDIAC DISORDER [None]
  - LUNG NEOPLASM MALIGNANT [None]
  - MUSCULOSKELETAL DISCOMFORT [None]
  - NEOPLASM MALIGNANT [None]
  - OESOPHAGEAL INFECTION [None]
  - OESOPHAGEAL VARICES HAEMORRHAGE [None]
  - VIRAL INFECTION [None]
